FAERS Safety Report 18097027 (Version 1)
Quarter: 2020Q3

REPORT INFORMATION
  Report Type: Spontaneous
  Country: US (occurrence: US)
  Receive Date: 20200730
  Receipt Date: 20200730
  Transmission Date: 20201103
  Serious: Yes (Other)
  Sender: FDA-Public Use
  Company Number: None

PATIENT
  Age: 39 Year
  Sex: Female
  Weight: 91.7 kg

DRUGS (7)
  1. REMDESIVIR. [Suspect]
     Active Substance: REMDESIVIR
     Indication: COVID-19
     Route: 042
     Dates: start: 20200709, end: 20200718
  2. ESMOLOL [Concomitant]
     Active Substance: ESMOLOL HYDROCHLORIDE
     Dates: start: 20200717, end: 20200719
  3. HEPARIN [Concomitant]
     Active Substance: HEPARIN SODIUM
     Dates: start: 20200712
  4. FUROSEMIDE. [Concomitant]
     Active Substance: FUROSEMIDE
     Dates: start: 20200719
  5. MEROPENEM. [Concomitant]
     Active Substance: MEROPENEM
     Dates: start: 20200716, end: 20200726
  6. MICAFUNGIN. [Concomitant]
     Active Substance: MICAFUNGIN SODIUM
     Dates: start: 20200717, end: 20200720
  7. FAMOTIDINE. [Concomitant]
     Active Substance: FAMOTIDINE
     Dates: start: 20200716

REACTIONS (1)
  - Alanine aminotransferase increased [None]

NARRATIVE: CASE EVENT DATE: 20200720
